FAERS Safety Report 5836753-5 (Version None)
Quarter: 2008Q3

REPORT INFORMATION
  Report Type: 
  Country: None (occurrence: None)
  Receive Date: 20080807
  Receipt Date: 20080806
  Transmission Date: 20090109
  Serious: Yes (Death, Hospitalization)
  Sender: FDA-Public Use
  Company Number: PHHO2005CN05923

PATIENT
  Sex: Female
  Weight: 55.5 kg

DRUGS (3)
  1. MYCOPHENOLATE MOFETIL [Suspect]
     Indication: RENAL TRANSPLANT
     Dosage: 1000 MG, BID
     Route: 065
     Dates: start: 20050125, end: 20050403
  2. NEORAL [Suspect]
     Indication: RENAL TRANSPLANT
     Route: 065
     Dates: start: 20050126
  3. PREDNISONE [Suspect]
     Indication: RENAL TRANSPLANT
     Route: 065
     Dates: start: 20050125

REACTIONS (2)
  - LUNG INFECTION [None]
  - PYREXIA [None]
